FAERS Safety Report 10149870 (Version 1)
Quarter: 2014Q2

REPORT INFORMATION
  Report Type: Spontaneous
  Country: US (occurrence: None)
  Receive Date: 20140501
  Receipt Date: 20140501
  Transmission Date: 20141212
  Serious: No
  Sender: FDA-Public Use
  Company Number: None

PATIENT
  Age: 24 Year
  Sex: Male
  Weight: 72.58 kg

DRUGS (1)
  1. ORACEA [Suspect]
     Indication: ACNE
     Dosage: 1, ONCE DAILY, TAKEN BY MOUTH
     Route: 048

REACTIONS (2)
  - Alopecia [None]
  - Product label issue [None]
